FAERS Safety Report 25581222 (Version 1)
Quarter: 2025Q3

REPORT INFORMATION
  Report Type: Other
  Country: US (occurrence: US)
  Receive Date: 20250718
  Receipt Date: 20250718
  Transmission Date: 20251021
  Serious: No
  Sender: BAJAJ MEDICAL, LLC
  Company Number: US-Bajaj Medical, LLC-2180788

PATIENT
  Age: 84 Year
  Sex: Female
  Weight: 81.364 kg

DRUGS (1)
  1. CHLORHEXIDINE GLUCONATE [Suspect]
     Active Substance: CHLORHEXIDINE GLUCONATE
     Indication: Tooth extraction
     Dates: start: 20250626, end: 20250715

REACTIONS (1)
  - Tooth discolouration [Unknown]

NARRATIVE: CASE EVENT DATE: 20250715
